FAERS Safety Report 6138153-X (Version None)
Quarter: 2009Q1

REPORT INFORMATION
  Report Type: 
  Country: None (occurrence: None)
  Receive Date: 20090327
  Receipt Date: 20090317
  Transmission Date: 20090719
  Serious: Yes (Other)
  Sender: FDA-Public Use
  Company Number: 2009US000817

PATIENT
  Age: 53 Year

DRUGS (13)
  1. LEXISCAN [Suspect]
     Indication: SCAN MYOCARDIAL PERFUSION
     Dosage: 0.4 MG, IV NOS
     Route: 042
     Dates: start: 20090316, end: 20090316
  2. NITROGLYCERIN [Concomitant]
  3. PRAVASTATIN [Concomitant]
  4. COUMADIN [Concomitant]
  5. TOPROL-XL [Concomitant]
  6. FUROSEMIDE [Concomitant]
  7. BACLOFEN [Concomitant]
  8. ASPIRIN [Concomitant]
  9. METFORMIN HCL [Concomitant]
  10. OMEPRAZOLE [Concomitant]
  11. POTASSIUM (POTASSIUM) [Concomitant]
  12. NEURONTIN [Concomitant]
  13. FLUOXETINE [Concomitant]

REACTIONS (4)
  - CHEST DISCOMFORT [None]
  - HYPERTENSION [None]
  - NAUSEA [None]
  - VENTRICULAR EXTRASYSTOLES [None]
